FAERS Safety Report 5221200-7 (Version None)
Quarter: 2007Q1

REPORT INFORMATION
  Report Type: 
  Country: None (occurrence: None)
  Receive Date: 20070126
  Receipt Date: 20070123
  Transmission Date: 20070707
  Serious: Yes (Hospitalization, Other)
  Sender: FDA-Public Use
  Company Number: US-BOEHRINGER INGELHEIM PHARMACEUTICALS, INC.-2006-BP-14520BP

PATIENT
  Sex: Female

DRUGS (13)
  1. CATAPRES-TTS-1 [Suspect]
     Indication: HYPERTENSION
     Route: 061
     Dates: start: 20061204
  2. CATAPRES-TTS-1 [Suspect]
     Route: 061
     Dates: start: 20061110, end: 20061203
  3. NORVASC [Concomitant]
     Indication: HYPERTENSION
  4. LORAZEPAM [Concomitant]
     Indication: ANXIETY
  5. KLONOPIN [Concomitant]
  6. TYLENOL [Concomitant]
  7. ASPIRIN [Concomitant]
  8. FLUTICASONE PROPIONATE [Concomitant]
     Route: 045
  9. METFORMIN HCL [Concomitant]
  10. AMOXICILLIN [Concomitant]
  11. LISINOPRIL [Concomitant]
  12. GABAPENTIN [Concomitant]
  13. MECLIZINE [Concomitant]

REACTIONS (6)
  - APPLICATION SITE IRRITATION [None]
  - BLOOD PRESSURE INCREASED [None]
  - DIZZINESS [None]
  - DYSPNOEA [None]
  - FALL [None]
  - SYNCOPE [None]
